FAERS Safety Report 12845112 (Version 2)
Quarter: 2016Q4

REPORT INFORMATION
  Report Type: Spontaneous
  Country: FR (occurrence: FR)
  Receive Date: 20161013
  Receipt Date: 20161024
  Transmission Date: 20170207
  Serious: Yes (Hospitalization)
  Sender: FDA-Public Use
  Company Number: FR-TEVA-698393ROM

PATIENT
  Age: 52 Year
  Sex: Male

DRUGS (9)
  1. DOXORUBICINE TEVA [Suspect]
     Active Substance: DOXORUBICIN
     Indication: HODGKIN^S DISEASE
     Dosage: SECOND COURSE
     Route: 042
     Dates: start: 20160921, end: 20160921
  2. ZELITREX [Concomitant]
     Active Substance: VALACYCLOVIR HYDROCHLORIDE
  3. ZOPHREN [Concomitant]
     Active Substance: ONDANSETRON
     Dosage: SECOND COURSE
     Dates: start: 20160921
  4. NATULAN [Concomitant]
     Active Substance: PROCARBAZINE HYDROCHLORIDE
     Dosage: SECOND COURSE
     Route: 048
     Dates: start: 20160921
  5. CORTANCYL [Concomitant]
     Active Substance: PREDNISONE
     Dosage: SECOND COURSE
     Route: 048
     Dates: start: 20160921
  6. MESNA. [Concomitant]
     Active Substance: MESNA
     Dosage: SECOND COURSE
     Dates: start: 20160921
  7. ETOPOSIDE. [Suspect]
     Active Substance: ETOPOSIDE
     Indication: HODGKIN^S DISEASE
     Dosage: SECOND COURSE
     Route: 042
     Dates: start: 20160921, end: 20160921
  8. BACTRIM [Concomitant]
     Active Substance: SULFAMETHOXAZOLE\TRIMETHOPRIM
     Dates: start: 2016
  9. CYCLOPHOSPHAMIDE. [Suspect]
     Active Substance: CYCLOPHOSPHAMIDE
     Indication: HODGKIN^S DISEASE
     Dosage: SECOND COURSE
     Route: 042
     Dates: start: 20160921, end: 20160921

REACTIONS (2)
  - Pyrexia [Recovered/Resolved]
  - Dermatitis exfoliative [Recovering/Resolving]

NARRATIVE: CASE EVENT DATE: 20160921
